FAERS Safety Report 24566121 (Version 1)
Quarter: 2024Q4

REPORT INFORMATION
  Report Type: Spontaneous
  Country: PT (occurrence: PT)
  Receive Date: 20241030
  Receipt Date: 20241030
  Transmission Date: 20250115
  Serious: Yes (Life-Threatening, Hospitalization, Disabling)
  Sender: GUERBET
  Company Number: None

PATIENT
  Age: 72 Year
  Sex: Female
  Weight: 59 kg

DRUGS (1)
  1. OPTIRAY 350 [Suspect]
     Active Substance: IOVERSOL
     Indication: Product used for unknown indication
     Dosage: SINGLE ADMINISTRATION
     Route: 042
     Dates: start: 20241010, end: 20241010

REACTIONS (6)
  - Cardio-respiratory arrest [Recovering/Resolving]
  - Nausea [Recovering/Resolving]
  - Generalised tonic-clonic seizure [Recovering/Resolving]
  - Incontinence [Recovering/Resolving]
  - Pulseless electrical activity [Recovering/Resolving]
  - Anaphylactic shock [Recovering/Resolving]

NARRATIVE: CASE EVENT DATE: 20241010
